FAERS Safety Report 5402176-6 (Version None)
Quarter: 2007Q3

REPORT INFORMATION
  Report Type: 
  Country: None (occurrence: None)
  Receive Date: 20070801
  Receipt Date: 20070720
  Transmission Date: 20080115
  Serious: Yes (Death, Life-Threatening, Hospitalization)
  Sender: FDA-Public Use
  Company Number: FI-NOVOPROD-265761

PATIENT
  Sex: Female
  Weight: 53 kg

DRUGS (6)
  1. NOVOSEVEN [Suspect]
     Indication: TRAUMATIC HAEMORRHAGE
     Dosage: 3 DOSES
     Route: 042
     Dates: start: 20070719, end: 20070719
  2. FENTANYL [Concomitant]
     Indication: PAIN
     Route: 042
     Dates: start: 20070719, end: 20070719
  3. PROPOFOL [Concomitant]
     Indication: SEDATIVE THERAPY
     Route: 042
     Dates: start: 20070719, end: 20070719
  4. KETANEST                           /00171201/ [Concomitant]
     Indication: SEDATIVE THERAPY
     Route: 042
     Dates: start: 20070719, end: 20070719
  5. ESMERON [Concomitant]
     Indication: MUSCLE RELAXANT THERAPY
     Route: 042
     Dates: start: 20070719, end: 20070719
  6. SUKOLIN [Concomitant]
     Indication: SEDATIVE THERAPY
     Route: 042
     Dates: start: 20070719, end: 20070719

REACTIONS (1)
  - DISSEMINATED INTRAVASCULAR COAGULATION [None]
